FAERS Safety Report 15506706 (Version 1)
Quarter: 2018Q4

REPORT INFORMATION
  Report Type: Spontaneous
  Country: ES (occurrence: ES)
  Receive Date: 20181016
  Receipt Date: 20181016
  Transmission Date: 20190205
  Serious: Yes (Hospitalization)
  Sender: FDA-Public Use
  Company Number: ES-009507513-1810ESP004216

PATIENT
  Age: 69 Year
  Sex: Male

DRUGS (4)
  1. TRANSTEC [Concomitant]
     Active Substance: BUPRENORPHINE
     Dosage: 35 MICORGRAM, UNK
     Route: 062
  2. DUAKLIR GENUAIR [Concomitant]
     Active Substance: ACLIDINIUM BROMIDE\FORMOTEROL FUMARATE
     Dosage: 1 DF, Q12H
     Route: 055
  3. LORMETAZEPAM [Concomitant]
     Active Substance: LORMETAZEPAM
     Dosage: 1 MG, QD
     Route: 048
  4. KEYTRUDA [Suspect]
     Active Substance: PEMBROLIZUMAB
     Indication: LUNG NEOPLASM MALIGNANT
     Dosage: 200 MG, CYCLICAL
     Route: 042
     Dates: start: 20180706, end: 20180706

REACTIONS (1)
  - Hepatotoxicity [Recovered/Resolved]

NARRATIVE: CASE EVENT DATE: 20180722
